FAERS Safety Report 4411124-7 (Version None)
Quarter: 2004Q2

REPORT INFORMATION
  Report Type: 
  Country: None (occurrence: None)
  Receive Date: 20040630
  Receipt Date: 20040422
  Transmission Date: 20050107
  Serious: No
  Sender: FDA-Public Use
  Company Number: 04P-163-0258494-00

PATIENT
  Age: 48 Year
  Sex: Female
  Weight: 182.346 kg

DRUGS (10)
  1. HUMIRA [Suspect]
     Indication: RHEUMATOID ARTHRITIS
     Dosage: 40 MG, 1 IN 2 WK, SUBCUTANEOUS
     Route: 058
     Dates: start: 20030101, end: 20040128
  2. ENALAPRIL MALEATE [Concomitant]
  3. LEVOTHYROXINE SODIUM [Concomitant]
  4. ROSIGLITAZONE MALEATE [Concomitant]
  5. METHOTREXATE [Concomitant]
  6. ULTRACET [Concomitant]
  7. OSCAL WITH D [Concomitant]
  8. FOLTIX [Concomitant]
  9. GLUCOCHONDROITIN [Concomitant]
  10. RISEDRONATE SODIUM [Concomitant]

REACTIONS (2)
  - ANAEMIA [None]
  - GASTRITIS HAEMORRHAGIC [None]
